FAERS Safety Report 22378986 (Version 4)
Quarter: 2024Q2

REPORT INFORMATION
  Report Type: Report from Study
  Country: AE (occurrence: None)
  Receive Date: 20230529
  Receipt Date: 20240619
  Transmission Date: 20240716
  Serious: Yes (Hospitalization)
  Sender: FDA-Public Use
  Company Number: 2023A121002

PATIENT
  Age: 70 Year
  Sex: Male
  Weight: 64 kg

DRUGS (4)
  1. EVUSHELD [Suspect]
     Active Substance: CILGAVIMAB\TIXAGEVIMAB
     Indication: COVID-19 treatment
     Dosage: 600 MG (300 MG TIXAGEVIMAB/300 MG CILGAVIMAB), ONCE/SINGLE ADMINISTRATION
     Route: 030
     Dates: start: 20230123
  2. SARS-COV-2 VACCINE (VERO CELL), INACTIVATED [Concomitant]
     Indication: COVID-19 prophylaxis
     Dosage: ONCE/SINGLE ADMINISTRATION
     Dates: start: 20211017
  3. SARS-COV-2 VACCINE (VERO CELL), INACTIVATED [Concomitant]
     Indication: COVID-19 prophylaxis
     Dosage: ONCE/SINGLE ADMINISTRATION
     Dates: start: 20211109
  4. SARS-COV-2 VACCINE (VERO CELL), INACTIVATED [Concomitant]
     Indication: COVID-19 prophylaxis
     Dosage: ONCE/SINGLE ADMINISTRATION
     Dates: start: 20220215

REACTIONS (1)
  - Idiopathic pulmonary fibrosis [Recovered/Resolved]

NARRATIVE: CASE EVENT DATE: 20230521
